FAERS Safety Report 7867228-X (Version None)
Quarter: 2011Q4

REPORT INFORMATION
  Report Type: 
  Country: None (occurrence: None)
  Receive Date: 20111028
  Receipt Date: 20111020
  Transmission Date: 20120403
  Serious: Yes (Hospitalization)
  Sender: FDA-Public Use
  Company Number: JP-GLAXOSMITHKLINE-B0757491A

PATIENT
  Sex: Female

DRUGS (2)
  1. VALTREX [Suspect]
     Indication: GENITAL HERPES
     Dosage: 2000MG PER DAY
     Route: 048
     Dates: start: 20110922, end: 20110927
  2. ZOVIRAX [Concomitant]
     Route: 061
     Dates: start: 20110922, end: 20110927

REACTIONS (4)
  - ABDOMINAL PAIN [None]
  - HEPATITIS VIRAL [None]
  - PYREXIA [None]
  - HEPATOMEGALY [None]
